FAERS Safety Report 8413000-1 (Version None)
Quarter: 2012Q2

REPORT INFORMATION
  Report Type: 
  Country: None (occurrence: None)
  Receive Date: 20120605
  Receipt Date: 20120529
  Transmission Date: 20120825
  Serious: No
  Sender: FDA-Public Use
  Company Number: US-AMGEN-USASP2012031144

PATIENT
  Age: 16 Year
  Sex: Female

DRUGS (7)
  1. ENBREL [Suspect]
     Indication: JUVENILE ARTHRITIS
     Dosage: 25 MG, QWK
     Route: 058
     Dates: start: 20120418
  2. MOBIC [Concomitant]
     Dosage: 7.5 MG, UNK
  3. METHOTREXATE [Concomitant]
     Dosage: 2.5 MG, UNK
  4. XYZAL [Concomitant]
     Dosage: 5 MG, UNK
  5. CO Q 10 [Concomitant]
     Dosage: 100 MG, UNK
  6. FOLIC ACID [Concomitant]
     Dosage: UNK
  7. MULTI-VITAMINS [Concomitant]
     Dosage: UNK

REACTIONS (1)
  - HEADACHE [None]
